FAERS Safety Report 18278317 (Version 2)
Quarter: 2020Q4

REPORT INFORMATION
  Report Type: Report from Study
  Country: GB (occurrence: GB)
  Receive Date: 20200917
  Receipt Date: 20201016
  Transmission Date: 20210113
  Serious: Yes (Hospitalization)
  Sender: FDA-Public Use
  Company Number: GB-JNJFOC-A-NJ2020-206306

PATIENT
  Age: 41 Year
  Sex: Female

DRUGS (1)
  1. VENTAVIS [Suspect]
     Active Substance: ILOPROST
     Indication: PULMONARY ARTERIAL HYPERTENSION
     Dosage: UNK
     Route: 055
     Dates: start: 20200605, end: 20200925

REACTIONS (7)
  - Headache [Unknown]
  - Incorrect drug administration rate [Unknown]
  - Nausea [Unknown]
  - Malaise [Unknown]
  - Hospitalisation [Unknown]
  - Eye pain [Unknown]
  - Abdominal pain [Recovering/Resolving]
